FAERS Safety Report 23101299 (Version 1)
Quarter: 2023Q4

REPORT INFORMATION
  Report Type: Other
  Country: US (occurrence: US)
  Receive Date: 20231024
  Receipt Date: 20231024
  Transmission Date: 20240109
  Serious: Yes (Hospitalization, Other)
  Sender: FDA-Public Use
  Company Number: US-Genus_Lifesciences-USA-POI0580202300203

PATIENT

DRUGS (1)
  1. GOPRELTO [Suspect]
     Active Substance: COCAINE HYDROCHLORIDE
     Indication: Drug abuse
     Dosage: UNKNOWN
     Route: 065
     Dates: end: 2023

REACTIONS (3)
  - Chest pain [Recovered/Resolved]
  - Ventricular tachycardia [Recovered/Resolved]
  - Cardiac failure [Recovered/Resolved]

NARRATIVE: CASE EVENT DATE: 20230101
